FAERS Safety Report 5049240-1 (Version None)
Quarter: 2006Q3

REPORT INFORMATION
  Report Type: 
  Country: None (occurrence: None)
  Receive Date: 20060706
  Receipt Date: 20060628
  Transmission Date: 20061208
  Serious: Yes (Hospitalization)
  Sender: FDA-Public Use
  Company Number: E2020-00206-SPO-JP

PATIENT
  Age: 74 Year
  Sex: Female

DRUGS (4)
  1. ARICEPT [Suspect]
     Indication: DEMENTIA ALZHEIMER'S TYPE
     Dosage: 3 MG, 1 IN 1 D; ORAL
     Route: 048
     Dates: start: 20040616, end: 20040629
  2. NIFEDIPINE [Concomitant]
  3. LIVALO (PITAVASTATIN) [Concomitant]
  4. RISPERDAL [Concomitant]

REACTIONS (4)
  - CONVULSION [None]
  - EPILEPSY [None]
  - SICK SINUS SYNDROME [None]
  - SYNCOPE [None]
